FAERS Safety Report 17545838 (Version 1)
Quarter: 2020Q1

REPORT INFORMATION
  Report Type: Spontaneous
  Country: US (occurrence: US)
  Receive Date: 20200306
  Receipt Date: 20200306
  Transmission Date: 20200409
  Serious: Yes (Hospitalization)
  Sender: FDA-Public Use
  Company Number: None

PATIENT
  Age: 77 Year
  Sex: Male
  Weight: 114 kg

DRUGS (1)
  1. BORTEZOMIB (PORTEZOMIB 3.5MG/VIL INJ) [Suspect]
     Active Substance: BORTEZOMIB
     Dates: start: 20191021

REACTIONS (4)
  - Cardiac failure congestive [None]
  - Oedema [None]
  - Diastolic dysfunction [None]
  - Fluid overload [None]

NARRATIVE: CASE EVENT DATE: 20191205
